FAERS Safety Report 6970071-7 (Version None)
Quarter: 2010Q3

REPORT INFORMATION
  Report Type: 
  Country: None (occurrence: None)
  Receive Date: 20100903
  Receipt Date: 20091130
  Transmission Date: 20110219
  Serious: No
  Sender: FDA-Public Use
  Company Number: 2009JP007220

PATIENT
  Sex: Female

DRUGS (1)
  1. SOLIFENACIN (SOLIFENACIN) TABLET [Suspect]
     Indication: URINARY INCONTINENCE
     Dosage: ORAL
     Route: 048

REACTIONS (2)
  - AMNESIA [None]
  - CONFUSIONAL STATE [None]
